FAERS Safety Report 10355146 (Version 3)
Quarter: 2014Q3

REPORT INFORMATION
  Report Type: Spontaneous
  Country: JP (occurrence: JP)
  Receive Date: 20140731
  Receipt Date: 20140825
  Transmission Date: 20150326
  Serious: Yes (Hospitalization)
  Sender: FDA-Public Use
  Company Number: PHHY2014JP066981

PATIENT
  Age: 88 Year
  Sex: Female
  Weight: 35 kg

DRUGS (3)
  1. MICARDIS [Concomitant]
     Active Substance: TELMISARTAN
     Dosage: 40 MG, UNK
     Route: 048
  2. AMLODIN [Concomitant]
     Active Substance: AMLODIPINE BESYLATE
     Dosage: 2.5 MG, UNK
     Route: 048
  3. EXELON PATCH [Suspect]
     Active Substance: RIVASTIGMINE
     Indication: DEMENTIA ALZHEIMER^S TYPE
     Dosage: 18 MG DAILY(9.5 MG/24HOURS)
     Route: 062
     Dates: end: 20140520

REACTIONS (5)
  - Fracture [Unknown]
  - Decreased appetite [Recovered/Resolved]
  - Urinary tract infection [Unknown]
  - Malnutrition [Unknown]
  - Dehydration [Unknown]

NARRATIVE: CASE EVENT DATE: 20140520
